FAERS Safety Report 10245413 (Version 1)
Quarter: 2014Q2

REPORT INFORMATION
  Report Type: Report from Study
  Country: JP (occurrence: JP)
  Receive Date: 20140618
  Receipt Date: 20140618
  Transmission Date: 20141212
  Serious: Yes (Life-Threatening, Other)
  Sender: FDA-Public Use
  Company Number: PHHY2014JP075367

PATIENT
  Age: 24 Year
  Sex: Female

DRUGS (6)
  1. CERTICAN [Suspect]
     Indication: HEART TRANSPLANT
     Dosage: 1.5 MG, UNK
     Route: 048
     Dates: start: 20130724, end: 20131229
  2. PROGRAF [Suspect]
     Indication: HEART TRANSPLANT
     Dosage: 8 MG, UNK
     Route: 048
     Dates: start: 20130512, end: 20130723
  3. PROGRAF [Suspect]
     Dosage: 4 MG, UNK
     Route: 048
     Dates: start: 20130724, end: 20131229
  4. CELLCEPT [Concomitant]
     Indication: HEART TRANSPLANT
     Dosage: 1500 MG, UNK
     Route: 048
     Dates: start: 20130512, end: 20130725
  5. RENIVACE [Concomitant]
     Dosage: 5 MG, UNK
     Route: 048
     Dates: start: 20130512, end: 20131229
  6. MEVALOTIN [Concomitant]
     Dosage: 5 MG, UNK
     Route: 048
     Dates: start: 20130512, end: 20130529

REACTIONS (2)
  - Lymphoma [Recovering/Resolving]
  - Small intestinal perforation [Unknown]
